FAERS Safety Report 15126408 (Version 1)
Quarter: 2018Q3

REPORT INFORMATION
  Report Type: Report from Study
  Country: CN (occurrence: CN)
  Receive Date: 20180710
  Receipt Date: 20180710
  Transmission Date: 20181010
  Serious: Yes (Life-Threatening, Hospitalization)
  Sender: FDA-Public Use
  Company Number: CN-ELI_LILLY_AND_COMPANY-CN201611007896

PATIENT
  Age: 54 Year
  Sex: Male
  Weight: 62 kg

DRUGS (7)
  1. DEXMEDETOMIDINE. [Concomitant]
     Active Substance: DEXMEDETOMIDINE
  2. CISPLATIN. [Suspect]
     Active Substance: CISPLATIN
     Indication: SQUAMOUS CELL CARCINOMA OF HEAD AND NECK
     Dosage: 127.5 MG, UNKNOWN
     Route: 042
     Dates: start: 20160701
  3. 5?FLUOROURACIL [Suspect]
     Active Substance: FLUOROURACIL
     Dosage: 6487.5 MG, UNKNOWN
     Route: 042
     Dates: end: 20161020
  4. CETUXIMAB. [Suspect]
     Active Substance: CETUXIMAB
     Dosage: 432.5 MG, WEEKLY (1/W)
     Route: 042
     Dates: start: 2016, end: 20161116
  5. CISPLATIN. [Suspect]
     Active Substance: CISPLATIN
     Dosage: 129.7 MG, UNKNOWN
     Route: 042
     Dates: end: 20161015
  6. 5?FLUOROURACIL [Suspect]
     Active Substance: FLUOROURACIL
     Indication: SQUAMOUS CELL CARCINOMA OF HEAD AND NECK
     Dosage: 6375 MG, UNKNOWN
     Route: 042
     Dates: start: 20160701
  7. CETUXIMAB. [Suspect]
     Active Substance: CETUXIMAB
     Indication: SQUAMOUS CELL CARCINOMA OF HEAD AND NECK
     Dosage: 680 MG, WEEKLY (1/W)
     Route: 042
     Dates: start: 20160701

REACTIONS (3)
  - Acid base balance abnormal [Recovered/Resolved]
  - Electrolyte imbalance [Recovered/Resolved]
  - Venous haemorrhage [Recovered/Resolved]

NARRATIVE: CASE EVENT DATE: 20161113
